FAERS Safety Report 7626561-7 (Version None)
Quarter: 2011Q3

REPORT INFORMATION
  Report Type: 
  Country: None (occurrence: None)
  Receive Date: 20110721
  Receipt Date: 20110720
  Transmission Date: 20111222
  Serious: Yes (Other)
  Sender: FDA-Public Use
  Company Number: US-GLAXOSMITHKLINE-B0696050A

PATIENT
  Age: 44 Year
  Sex: Female
  Weight: 82.7 kg

DRUGS (2)
  1. AVANDAMET [Suspect]
     Indication: DIABETES MELLITUS
     Route: 048
     Dates: start: 20040101, end: 20050101
  2. AVANDIA [Suspect]
     Indication: DIABETES MELLITUS
     Dosage: 2MG THREE TIMES PER DAY
     Route: 048
     Dates: start: 20030501

REACTIONS (9)
  - DYSPNOEA [None]
  - CONDITION AGGRAVATED [None]
  - ARRHYTHMIA [None]
  - DIABETES MELLITUS [None]
  - FATIGUE [None]
  - MUSCLE SPASMS [None]
  - WEIGHT DECREASED [None]
  - CHEST PAIN [None]
  - ALOPECIA [None]
